FAERS Safety Report 16965172 (Version 1)
Quarter: 2019Q4

REPORT INFORMATION
  Report Type: Spontaneous
  Country: GB (occurrence: GB)
  Receive Date: 20191028
  Receipt Date: 20191028
  Transmission Date: 20200122
  Serious: Yes (Other)
  Sender: FDA-Public Use
  Company Number: GB-TEVA-2019-GB-1128719

PATIENT
  Age: 57 Year
  Sex: Female

DRUGS (2)
  1. ESCITALOPRAM [Suspect]
     Active Substance: ESCITALOPRAM OXALATE
     Indication: MAJOR DEPRESSION
     Route: 065
  2. OLANZAPINE. [Interacting]
     Active Substance: OLANZAPINE
     Route: 065

REACTIONS (3)
  - Akathisia [Recovered/Resolved]
  - Suicidal ideation [Recovered/Resolved]
  - Drug interaction [Recovered/Resolved]
